FAERS Safety Report 6064934-7 (Version None)
Quarter: 2009Q1

REPORT INFORMATION
  Report Type: 
  Country: None (occurrence: None)
  Receive Date: 20090203
  Receipt Date: 20090203
  Transmission Date: 20090719
  Serious: Yes (Life-Threatening, Hospitalization)
  Sender: FDA-Public Use
  Company Number: None

PATIENT
  Age: 47 Year
  Sex: Female
  Weight: 63 kg

DRUGS (1)
  1. CARBOPLATIN [Suspect]
     Indication: FALLOPIAN TUBE CANCER
     Dosage: 415MG ONE TIME IV
     Route: 042
     Dates: start: 20090105, end: 20090105

REACTIONS (7)
  - CARDIO-RESPIRATORY ARREST [None]
  - DIZZINESS [None]
  - ELECTROMECHANICAL DISSOCIATION [None]
  - FEELING ABNORMAL [None]
  - MENTAL STATUS CHANGES [None]
  - UNRESPONSIVE TO STIMULI [None]
  - VOMITING [None]
